FAERS Safety Report 8049171-9 (Version None)
Quarter: 2012Q1

REPORT INFORMATION
  Report Type: 
  Country: None (occurrence: None)
  Receive Date: 20120117
  Receipt Date: 20120105
  Transmission Date: 20120608
  Serious: Yes (Hospitalization)
  Sender: FDA-Public Use
  Company Number: FR-JNJFOC-20120103927

PATIENT
  Age: 44 Year
  Sex: Male

DRUGS (9)
  1. RIFAXIMIN [Concomitant]
     Route: 048
  2. IBUPROFEN [Suspect]
     Indication: ARTHRALGIA
     Route: 048
     Dates: start: 20111116, end: 20111120
  3. ALDACTONE [Interacting]
     Indication: PRODUCT USED FOR UNKNOWN INDICATION
     Route: 048
     Dates: end: 20111123
  4. LASIX [Interacting]
     Indication: PRODUCT USED FOR UNKNOWN INDICATION
     Route: 048
     Dates: end: 20111123
  5. DUPHALAC [Concomitant]
     Route: 048
  6. PROPRANOLOL [Concomitant]
     Route: 048
  7. SUBUTEX [Concomitant]
     Route: 048
  8. IBUPROFEN [Suspect]
     Route: 048
  9. NORFLOXACIN [Concomitant]
     Route: 048

REACTIONS (2)
  - DRUG INTERACTION [None]
  - RENAL FAILURE ACUTE [None]
